FAERS Safety Report 6535371-3 (Version None)
Quarter: 2010Q1

REPORT INFORMATION
  Report Type: 
  Country: None (occurrence: None)
  Receive Date: 20100105
  Receipt Date: 20091221
  Transmission Date: 20100710
  Serious: Yes (Other)
  Sender: FDA-Public Use
  Company Number: 235097J09USA

PATIENT
  Age: 60 Year
  Sex: Female
  Weight: 82 kg

DRUGS (5)
  1. REBIF [Suspect]
     Indication: MULTIPLE SCLEROSIS
     Dosage: 44 MCG, 3 IN 1 WEEKS, SUBCUTANEOUS
     Route: 058
     Dates: start: 20090419
  2. TYLENOL [Concomitant]
  3. METFORMIN HCL [Concomitant]
  4. LISINOPRIL [Concomitant]
  5. ATENOLOL [Concomitant]

REACTIONS (1)
  - BREAST CANCER FEMALE [None]
